FAERS Safety Report 9315746 (Version 1)
Quarter: 2013Q2

REPORT INFORMATION
  Report Type: Spontaneous
  Country: US (occurrence: US)
  Receive Date: 20130529
  Receipt Date: 20130529
  Transmission Date: 20140414
  Serious: No
  Sender: FDA-Public Use
  Company Number: US-009507513-1305USA016597

PATIENT
  Sex: Female
  Weight: 58.5 kg

DRUGS (5)
  1. MIRALAX [Suspect]
     Indication: CONSTIPATION
     Dosage: 17 G, UNKNOWN
     Route: 048
     Dates: start: 2012, end: 2013
  2. MIRALAX [Suspect]
     Indication: MEDICAL OBSERVATION
  3. ZOCOR [Concomitant]
     Indication: BLOOD CHOLESTEROL INCREASED
     Dosage: 20 MG, UNKNOWN
  4. HYDROCHLOROTHIAZIDE (+) TRIAMTERENE [Concomitant]
     Indication: HYPERTENSION
     Dosage: 18.75 MG, UNKNOWN
  5. METOPROLOL [Concomitant]
     Indication: HYPERTENSION
     Dosage: 12.5 MG, UNKNOWN

REACTIONS (2)
  - Dependence [Unknown]
  - Inappropriate schedule of drug administration [Unknown]
